FAERS Safety Report 18213534 (Version 6)
Quarter: 2020Q4

REPORT INFORMATION
  Report Type: Spontaneous
  Country: US (occurrence: US)
  Receive Date: 20200831
  Receipt Date: 20201117
  Transmission Date: 20210113
  Serious: No
  Sender: FDA-Public Use
  Company Number: US-PFIZER INC-2018011594

PATIENT
  Age: 66 Year
  Sex: Female
  Weight: 58 kg

DRUGS (4)
  1. LYRICA [Suspect]
     Active Substance: PREGABALIN
     Dosage: 300 MG, 2X/DAY (1 CAPSULE IN THE EVENING 1 TO 3 HOURS BEFORE BEDTIME TWICE A DAY)
     Route: 048
     Dates: start: 2020, end: 2020
  2. LYRICA [Suspect]
     Active Substance: PREGABALIN
     Indication: FIBROMYALGIA
     Dosage: 300 MG, 2X/DAY (300 MG IN THE MORNING, 300 MG AT NIGHT)
     Route: 048
  3. RESTASIS [Concomitant]
     Active Substance: CYCLOSPORINE
     Dosage: UNK
  4. LYRICA [Suspect]
     Active Substance: PREGABALIN
     Indication: MIGRAINE
     Dosage: 300 MG, 1X/DAY (IN THE EVENING 1 TO 3 HOURS BEFORE BEDTIME)
     Route: 048
     Dates: start: 202005, end: 2020

REACTIONS (12)
  - Osteoporosis [Unknown]
  - Feeling abnormal [Unknown]
  - Hypoacusis [Unknown]
  - Product prescribing issue [Unknown]
  - Body height decreased [Unknown]
  - Arthralgia [Unknown]
  - Pain in extremity [Unknown]
  - Off label use [Unknown]
  - Visual impairment [Unknown]
  - Nightmare [Unknown]
  - Illness [Not Recovered/Not Resolved]
  - Drug ineffective [Unknown]
